FAERS Safety Report 9733775 (Version 2)
Quarter: 2014Q1

REPORT INFORMATION
  Report Type: Spontaneous
  Country: US (occurrence: US)
  Receive Date: 20131205
  Receipt Date: 20140103
  Transmission Date: 20141002
  Serious: No
  Sender: FDA-Public Use
  Company Number: US-009507513-1312USA002642

PATIENT
  Age: 77 Year
  Sex: Female
  Weight: 68.27 kg

DRUGS (7)
  1. OXYTROL FOR WOMEN [Suspect]
     Indication: POLLAKIURIA
     Dosage: UNK, UNKNOWN
     Route: 062
     Dates: start: 20131104, end: 20131110
  2. ALEVE [Concomitant]
     Indication: ARTHRITIS
     Dosage: UNK, UNKNOWN
  3. CHONDROITIN SULFATE SODIUM (+) GLUCOSAMINE SULFATE [Concomitant]
     Indication: ARTHRITIS
     Dosage: UNK, UNKNOWN
  4. CALCIUM (UNSPECIFIED) [Concomitant]
     Indication: PRODUCT USED FOR UNKNOWN INDICATION
     Dosage: UNK, UNKNOWN
  5. VITAMIN B (UNSPECIFIED) [Concomitant]
     Indication: PRODUCT USED FOR UNKNOWN INDICATION
     Dosage: UNK, UNKNOWN
  6. VITAMINS (UNSPECIFIED) [Concomitant]
     Indication: PRODUCT USED FOR UNKNOWN INDICATION
     Dosage: UNK, UNKNOWN
  7. OMEPRAZOLE [Concomitant]
     Indication: PRODUCT USED FOR UNKNOWN INDICATION
     Dosage: 20 MG, PRN

REACTIONS (2)
  - Acne [Recovered/Resolved]
  - Pruritus [Recovered/Resolved]
